FAERS Safety Report 6770875-X (Version None)
Quarter: 2010Q2

REPORT INFORMATION
  Report Type: 
  Country: None (occurrence: None)
  Receive Date: 20100614
  Receipt Date: 20100604
  Transmission Date: 20101027
  Serious: Yes (Hospitalization)
  Sender: FDA-Public Use
  Company Number: 8049376

PATIENT
  Sex: Female
  Weight: 72 kg

DRUGS (10)
  1. CERTOLIZUMA PEGOL (CERTOLIZUMAB PEGOL) [Suspect]
     Indication: RHEUMATOID ARTHRITIS
     Dosage: (400 MG 1X/2 WEEKS, SUBCUTANEOUS)
     Route: 058
     Dates: start: 20050831, end: 20060816
  2. CERTOLIZUMA PEGOL (CERTOLIZUMAB PEGOL) [Suspect]
     Indication: RHEUMATOID ARTHRITIS
     Dosage: (400 MG 1X/2 WEEKS, SUBCUTANEOUS)
     Route: 058
     Dates: start: 20060829, end: 20090715
  3. CERTOLIZUMA PEGOL (CERTOLIZUMAB PEGOL) [Suspect]
     Indication: RHEUMATOID ARTHRITIS
     Dosage: (400 MG 1X/2 WEEKS, SUBCUTANEOUS)
     Route: 058
     Dates: start: 20090717
  4. FOLIC ACID [Concomitant]
  5. METHOTREXATE [Concomitant]
  6. LEVOTHYROXINE SODIUM [Concomitant]
  7. OMEPRAZOLE [Concomitant]
  8. CLONAZEPAM [Concomitant]
  9. ATORVASTATIN [Concomitant]
  10. ASPIRIN [Concomitant]

REACTIONS (10)
  - BIPOLAR DISORDER [None]
  - DYSLIPIDAEMIA [None]
  - HYPOTHYROIDISM [None]
  - INTERVERTEBRAL DISC PROTRUSION [None]
  - NECK PAIN [None]
  - NO THERAPEUTIC RESPONSE [None]
  - OSTEOARTHRITIS [None]
  - PARAESTHESIA [None]
  - RADICULOPATHY [None]
  - RHEUMATOID ARTHRITIS [None]
